FAERS Safety Report 10010720 (Version 1)
Quarter: 2014Q1

REPORT INFORMATION
  Report Type: Spontaneous
  Country: US (occurrence: US)
  Receive Date: 20140314
  Receipt Date: 20140314
  Transmission Date: 20141002
  Serious: No
  Sender: FDA-Public Use
  Company Number: US-DRREDDYS-USA/USA/13/0028335

PATIENT
  Age: 76 Year
  Sex: Female
  Weight: 62.65 kg

DRUGS (5)
  1. FEXOFENADINE HCL OTC [Suspect]
     Indication: ANGIOEDEMA
     Route: 048
  2. CETIRIZINE 10 MG [Suspect]
     Indication: ANGIOEDEMA
     Route: 048
  3. HYDROCHLOROTHIAZIDE [Concomitant]
     Indication: PRODUCT USED FOR UNKNOWN INDICATION
     Route: 065
  4. LIPITOR [Concomitant]
     Indication: PRODUCT USED FOR UNKNOWN INDICATION
     Route: 065
  5. POTASSIUM [Concomitant]
     Indication: PRODUCT USED FOR UNKNOWN INDICATION
     Route: 065

REACTIONS (3)
  - Hypertension [Unknown]
  - Neck pain [Unknown]
  - Musculoskeletal pain [Unknown]
